FAERS Safety Report 7318746-4 (Version None)
Quarter: 2011Q1

REPORT INFORMATION
  Report Type: 
  Country: None (occurrence: None)
  Receive Date: 20110228
  Receipt Date: 20100303
  Transmission Date: 20110831
  Serious: No
  Sender: FDA-Public Use
  Company Number: A0848053A

PATIENT
  Age: 60 Year
  Sex: Female

DRUGS (6)
  1. FIORINAL [Concomitant]
  2. MAXALT [Concomitant]
  3. EFFEXOR [Concomitant]
  4. WELLBUTRIN [Concomitant]
  5. IMITREX [Suspect]
     Indication: MIGRAINE
     Route: 058
  6. CYTOMEL [Concomitant]

REACTIONS (1)
  - INJECTION SITE PAIN [None]
